FAERS Safety Report 19139206 (Version 1)
Quarter: 2021Q2

REPORT INFORMATION
  Report Type: Spontaneous
  Country: US (occurrence: US)
  Receive Date: 20210414
  Receipt Date: 20210414
  Transmission Date: 20210717
  Serious: No
  Sender: FDA-Public Use
  Company Number: None

PATIENT
  Age: 61 Year
  Sex: Female
  Weight: 58.5 kg

DRUGS (8)
  1. PROBIOTIC [Concomitant]
     Active Substance: PROBIOTICS NOS
  2. MULVITAMIN [Concomitant]
  3. VITAMIN B COMPLEX [Concomitant]
     Active Substance: CYANOCOBALAMIN\DEXPANTHENOL\NIACINAMIDE\PYRIDOXINE HYDROCHLORIDE\RIBOFLAVIN 5^-PHOSPHATE SODIUM\THIAMINE HYDROCHLORIDE\VITAMIN B COMPLEX
  4. FLAXSEED [Concomitant]
     Active Substance: FLAX SEED
  5. AZITHROMYCIN ANHYDROUS. [Suspect]
     Active Substance: AZITHROMYCIN ANHYDROUS
     Indication: SINUSITIS
     Route: 048
     Dates: start: 20210320, end: 20210324
  6. VITAMIN D3 [Concomitant]
     Active Substance: CHOLECALCIFEROL
  7. VITAMIN C [Concomitant]
     Active Substance: ASCORBIC ACID
  8. COD LIVER OIL [Concomitant]
     Active Substance: COD LIVER OIL

REACTIONS (9)
  - Alopecia [None]
  - Rash macular [None]
  - Skin exfoliation [None]
  - Psoriasis [None]
  - Insomnia [None]
  - Impaired work ability [None]
  - Pruritus [None]
  - Pain [None]
  - General physical condition abnormal [None]

NARRATIVE: CASE EVENT DATE: 20210326
